FAERS Safety Report 7918192-6 (Version None)
Quarter: 2011Q4

REPORT INFORMATION
  Report Type: 
  Country: None (occurrence: None)
  Receive Date: 20111116
  Receipt Date: 20111104
  Transmission Date: 20120403
  Serious: Yes (Hospitalization)
  Sender: FDA-Public Use
  Company Number: US-GLAXOSMITHKLINE-A0725142A

PATIENT
  Age: 83 Year
  Sex: Male
  Weight: 79.5 kg

DRUGS (17)
  1. CYMBALTA [Concomitant]
  2. VITAMIN B COMPLEX CAP [Concomitant]
  3. AVANDIA [Suspect]
     Indication: TYPE 2 DIABETES MELLITUS
     Dosage: 4MG PER DAY
     Route: 065
     Dates: start: 20040521, end: 20060101
  4. LISINOPRIL [Concomitant]
  5. COZAAR [Concomitant]
  6. FISH OIL [Concomitant]
  7. WARFARIN SODIUM [Concomitant]
  8. CRESTOR [Concomitant]
  9. NITROFURANTOIN [Concomitant]
  10. IRON [Concomitant]
  11. FLAX OIL [Concomitant]
  12. VITAMIN E [Concomitant]
  13. HYDROXYCHLOROQUINE SULFATE [Concomitant]
  14. FOLIC ACID [Concomitant]
  15. ASPIRIN [Concomitant]
  16. ASCORBIC ACID [Concomitant]
  17. SAW PALMETTO [Concomitant]

REACTIONS (2)
  - HEART INJURY [None]
  - CARDIAC FAILURE CONGESTIVE [None]
